FAERS Safety Report 13878899 (Version 2)
Quarter: 2017Q3

REPORT INFORMATION
  Report Type: Spontaneous
  Country: BR (occurrence: BR)
  Receive Date: 20170817
  Receipt Date: 20170818
  Transmission Date: 20171127
  Serious: Yes (Other)
  Sender: FDA-Public Use
  Company Number: PHHY2017BR120194

PATIENT
  Age: 59 Year
  Sex: Male

DRUGS (1)
  1. CICLOSPORIN [Suspect]
     Active Substance: CYCLOSPORINE
     Indication: PSORIASIS
     Dosage: UNK
     Route: 065

REACTIONS (8)
  - Feeling abnormal [Unknown]
  - Psoriasis [Unknown]
  - Body surface area increased [Unknown]
  - Social avoidant behaviour [Unknown]
  - Skin lesion [Not Recovered/Not Resolved]
  - Psoriasis area severity index increased [Unknown]
  - Depressive symptom [Unknown]
  - Therapy partial responder [Unknown]
